FAERS Safety Report 5278880-X (Version None)
Quarter: 2007Q1

REPORT INFORMATION
  Report Type: 
  Country: None (occurrence: None)
  Receive Date: 20061208
  Receipt Date: 20051229
  Transmission Date: 20070707
  Serious: Yes (Disabling)
  Sender: FDA-Public Use
  Company Number: 2005UW19560

PATIENT
  Age: 80 Year
  Sex: Male
  Weight: 86.1834 kg

DRUGS (5)
  1. CRESTOR [Suspect]
     Indication: BLOOD CHOLESTEROL INCREASED
     Dosage: 10 MG DAILY PO
     Route: 048
  2. LOPID [Suspect]
  3. ZOCOR [Suspect]
  4. LIPITOR [Suspect]
  5. FLOMAX [Concomitant]

REACTIONS (3)
  - ASTHENIA [None]
  - MYALGIA [None]
  - RENAL IMPAIRMENT [None]
